FAERS Safety Report 14255815 (Version 2)
Quarter: 2018Q1

REPORT INFORMATION
  Report Type: Spontaneous
  Country: US (occurrence: US)
  Receive Date: 20171206
  Receipt Date: 20180319
  Transmission Date: 20180508
  Serious: Yes (Hospitalization)
  Sender: FDA-Public Use
  Company Number: US-JNJFOC-20171206169

PATIENT
  Sex: Male

DRUGS (1)
  1. STELARA [Suspect]
     Active Substance: USTEKINUMAB
     Indication: PRODUCT USED FOR UNKNOWN INDICATION
     Route: 058

REACTIONS (5)
  - Myocardial infarction [Unknown]
  - Ligament sprain [Unknown]
  - Joint injury [Unknown]
  - Fall [Unknown]
  - Arthritis [Unknown]

NARRATIVE: CASE EVENT DATE: 2018
